FAERS Safety Report 13566068 (Version 2)
Quarter: 2017Q3

REPORT INFORMATION
  Report Type: Spontaneous
  Country: GB (occurrence: GB)
  Receive Date: 20170521
  Receipt Date: 20170704
  Transmission Date: 20171127
  Serious: Yes (Hospitalization, Other)
  Sender: FDA-Public Use
  Company Number: GB-AMGEN-GBRSP2017076529

PATIENT
  Age: 63 Year
  Sex: Male

DRUGS (1)
  1. ENBREL [Suspect]
     Active Substance: ETANERCEPT
     Indication: PRODUCT USED FOR UNKNOWN INDICATION
     Dosage: 50 MG, UNK
     Route: 058

REACTIONS (3)
  - Wrist fracture [Unknown]
  - Pelvic fracture [Unknown]
  - Hip fracture [Unknown]
